FAERS Safety Report 17925055 (Version 3)
Quarter: 2021Q1

REPORT INFORMATION
  Report Type: Spontaneous
  Country: US (occurrence: US)
  Receive Date: 20200622
  Receipt Date: 20210126
  Transmission Date: 20210419
  Serious: Yes (Hospitalization, Other)
  Sender: FDA-Public Use
  Company Number: US-NAPPMUNDI-USA-2020-0153088

PATIENT
  Sex: Male

DRUGS (1)
  1. OXYCONTIN [Suspect]
     Active Substance: OXYCODONE HYDROCHLORIDE
     Indication: HIP SURGERY
     Dosage: 15 MG, UNK
     Route: 048
     Dates: start: 2014

REACTIONS (4)
  - Drug dependence [Unknown]
  - Overdose [Unknown]
  - Device related infection [Unknown]
  - Hip surgery [Unknown]

NARRATIVE: CASE EVENT DATE: 2014
